FAERS Safety Report 20503457 (Version 3)
Quarter: 2022Q2

REPORT INFORMATION
  Report Type: Report from Study
  Country: US (occurrence: US)
  Receive Date: 20220222
  Receipt Date: 20220415
  Transmission Date: 20220721
  Serious: No
  Sender: FDA-Public Use
  Company Number: US-KYOWAKIRIN-2022BKK001812

PATIENT

DRUGS (1)
  1. CRYSVITA [Suspect]
     Active Substance: BUROSUMAB-TWZA
     Indication: Hereditary hypophosphataemic rickets
     Dosage: 20 MG, ONCE EVERY 2 WEEKS
     Route: 058
     Dates: start: 20220121

REACTIONS (5)
  - Musculoskeletal stiffness [Unknown]
  - Decreased activity [Recovering/Resolving]
  - Blister [Unknown]
  - Pain in extremity [Recovering/Resolving]
  - Condition aggravated [Recovering/Resolving]

NARRATIVE: CASE EVENT DATE: 20220101
